FAERS Safety Report 9926038 (Version 2)
Quarter: 2014Q1

REPORT INFORMATION
  Report Type: Report from Study
  Country: NL (occurrence: NL)
  Receive Date: 20140226
  Receipt Date: 20140326
  Transmission Date: 20141002
  Serious: Yes (Hospitalization)
  Sender: FDA-Public Use
  Company Number: PHHY2014NL023390

PATIENT
  Age: 83 Year
  Sex: Male

DRUGS (4)
  1. ZOMETA [Suspect]
     Indication: PROSTATE CANCER METASTATIC
     Dosage: 4 MG PER 100 ML, 1XPER 4 WEEKS
     Route: 042
  2. ZOMETA [Suspect]
     Dosage: 4 MG PER 100 ML, 1XPER 4 WEEKS
     Route: 042
     Dates: start: 20090410
  3. ZOMETA [Suspect]
     Dosage: 4 MG PER 100 ML, 1XPER 4 WEEKS
     Dates: start: 20140127
  4. ZOMETA [Suspect]
     Dosage: 4 MG PER 100 ML, 1XPER 4 WEEKS
     Route: 042
     Dates: start: 20140324

REACTIONS (2)
  - Pneumonia [Recovered/Resolved]
  - Pyrexia [Not Recovered/Not Resolved]
